FAERS Safety Report 21969350 (Version 1)
Quarter: 2023Q1

REPORT INFORMATION
  Report Type: Spontaneous
  Country: IT (occurrence: IT)
  Receive Date: 20230208
  Receipt Date: 20230208
  Transmission Date: 20230417
  Serious: Yes (Other)
  Sender: FDA-Public Use
  Company Number: IT-AMERICAN REGENT INC-2023000289

PATIENT
  Age: 35 Year
  Sex: Male
  Weight: 65 kg

DRUGS (2)
  1. FERINJECT [Suspect]
     Active Substance: FERRIC CARBOXYMALTOSE
     Indication: Iron deficiency anaemia
     Dosage: UNK
     Route: 042
     Dates: start: 202211
  2. FERINJECT [Suspect]
     Active Substance: FERRIC CARBOXYMALTOSE
     Dosage: 1000 MILLIGRAM
     Dates: start: 20230119, end: 20230119

REACTIONS (5)
  - Dermatitis bullous [Recovered/Resolved]
  - Infusion site reaction [Recovered/Resolved]
  - Rash erythematous [Recovered/Resolved]
  - Urticaria [Recovered/Resolved]
  - Angioedema [Recovered/Resolved]

NARRATIVE: CASE EVENT DATE: 20230119
